FAERS Safety Report 17080250 (Version 1)
Quarter: 2019Q4

REPORT INFORMATION
  Report Type: Spontaneous
  Country: CA (occurrence: CA)
  Receive Date: 20191127
  Receipt Date: 20191127
  Transmission Date: 20200122
  Serious: Yes (Other)
  Sender: FDA-Public Use
  Company Number: CA-TEVA-2019-CA-1140697

PATIENT
  Sex: Female
  Weight: 51 kg

DRUGS (13)
  1. GEMCITABINE. [Concomitant]
     Active Substance: GEMCITABINE
  2. METHYLPREDNISOLONE NOS [Concomitant]
     Active Substance: METHYLPREDNISOLONE
  3. VINCRISTINE SULFATE. [Concomitant]
     Active Substance: VINCRISTINE SULFATE
  4. BRENTUXIMAB VEDOTIN [Concomitant]
     Active Substance: BRENTUXIMAB VEDOTIN
  5. CYCLOPHOSPHAMIDE. [Concomitant]
     Active Substance: CYCLOPHOSPHAMIDE
  6. DOXORUBICIN HYDROCHLORIDE INJECTION [Suspect]
     Active Substance: DOXORUBICIN HYDROCHLORIDE
     Indication: HODGKIN^S DISEASE
     Route: 042
  7. BUSULFAN. [Concomitant]
     Active Substance: BUSULFAN
  8. MELPHALAN. [Concomitant]
     Active Substance: MELPHALAN
  9. DEXAMETHASONE. [Concomitant]
     Active Substance: DEXAMETHASONE
  10. PREDNISONE. [Concomitant]
     Active Substance: PREDNISONE
  11. BLEOMYCIN SULPHATE FOR INJECTION USP [Concomitant]
     Active Substance: BLEOMYCIN SULFATE
  12. ETOPOSIDE. [Concomitant]
     Active Substance: ETOPOSIDE
  13. VINORELBINE TARTRATE FOR INJECTION [Concomitant]
     Active Substance: VINORELBINE TARTRATE

REACTIONS (1)
  - Cardiotoxicity [Unknown]
